FAERS Safety Report 25064025 (Version 1)
Quarter: 2025Q1

REPORT INFORMATION
  Report Type: Report from Study
  Country: IT (occurrence: IT)
  Receive Date: 20250311
  Receipt Date: 20250311
  Transmission Date: 20250409
  Serious: Yes (Other)
  Sender: JOHNSON AND JOHNSON
  Company Number: IT-JNJFOC-20250300694

PATIENT

DRUGS (3)
  1. DARZALEX [Suspect]
     Active Substance: DARATUMUMAB
     Indication: Plasma cell myeloma
     Route: 065
  2. ACYCLOVIR [Concomitant]
     Active Substance: ACYCLOVIR
     Indication: Antiviral prophylaxis
  3. TRIMETHOPRIM COMP. [Concomitant]
     Indication: Antibiotic prophylaxis

REACTIONS (27)
  - Neutropenia [Unknown]
  - Thrombocytopenia [Unknown]
  - Anaemia [Unknown]
  - Febrile neutropenia [Unknown]
  - Lymphopenia [Unknown]
  - Pneumonia [Unknown]
  - Second primary malignancy [Unknown]
  - Infection [Unknown]
  - Upper respiratory tract infection [Unknown]
  - Diarrhoea [Unknown]
  - Peripheral sensory neuropathy [Unknown]
  - Constipation [Unknown]
  - Epigastric discomfort [Unknown]
  - Dysgeusia [Unknown]
  - Pyrexia [Unknown]
  - Arthralgia [Unknown]
  - Asthenia [Unknown]
  - Cough [Unknown]
  - Fatigue [Unknown]
  - Rash [Unknown]
  - Back pain [Unknown]
  - Oedema peripheral [Unknown]
  - Nausea [Unknown]
  - Tendonitis [Unknown]
  - COVID-19 [Unknown]
  - Herpes zoster [Unknown]
  - Infusion related reaction [Unknown]
